FAERS Safety Report 11733894 (Version 1)
Quarter: 2015Q4

REPORT INFORMATION
  Report Type: Report from Study
  Country: US (occurrence: US)
  Receive Date: 20151113
  Receipt Date: 20151113
  Transmission Date: 20160304
  Serious: Yes (Hospitalization, Other)
  Sender: FDA-Public Use
  Company Number: US-ABBVIE-15K-163-1458658-00

PATIENT
  Age: 34 Year
  Sex: Female

DRUGS (5)
  1. HUMIRA [Suspect]
     Active Substance: ADALIMUMAB
     Indication: RHEUMATOID ARTHRITIS
     Route: 058
     Dates: start: 20150730
  2. PREDNISONE. [Suspect]
     Active Substance: PREDNISONE
     Indication: RHEUMATOID ARTHRITIS
     Dosage: DAY 1
     Route: 065
     Dates: start: 20150821, end: 20150821
  3. PREDNISONE. [Suspect]
     Active Substance: PREDNISONE
     Dosage: DAY 2
     Route: 065
     Dates: start: 20150822, end: 20150822
  4. PREDNISONE. [Suspect]
     Active Substance: PREDNISONE
     Dosage: DAY 3
     Route: 065
     Dates: start: 20150823, end: 20150823
  5. HUMIRA [Suspect]
     Active Substance: ADALIMUMAB
     Route: 058
     Dates: start: 2015

REACTIONS (10)
  - Vomiting [Recovered/Resolved]
  - Procedural pain [Recovered/Resolved]
  - Adhesion [Recovered/Resolved]
  - Diarrhoea [Recovered/Resolved]
  - Drug effect decreased [Recovered/Resolved]
  - Post procedural swelling [Recovered/Resolved]
  - Uterine leiomyoma [Recovered/Resolved]
  - Rheumatoid arthritis [Unknown]
  - Rheumatoid arthritis [Recovering/Resolving]
  - Abdominal pain [Recovered/Resolved]

NARRATIVE: CASE EVENT DATE: 2015
